FAERS Safety Report 8161872-0 (Version None)
Quarter: 2012Q1

REPORT INFORMATION
  Report Type: 
  Country: None (occurrence: None)
  Receive Date: 20120224
  Receipt Date: 20110809
  Transmission Date: 20120608
  Serious: No
  Sender: FDA-Public Use
  Company Number: US-BRISTOL-MYERS SQUIBB COMPANY-15957939

PATIENT
  Age: 84 Year
  Sex: Female

DRUGS (8)
  1. ASCORBIC ACID [Suspect]
  2. METFORMIN HCL [Suspect]
  3. BENDAMUSTINE [Suspect]
  4. RITUXAN [Suspect]
  5. CYTOXAN [Suspect]
     Indication: CHRONIC LYMPHOCYTIC LEUKAEMIA
  6. PREDNISONE [Suspect]
  7. ONCOVIN [Suspect]
  8. GLIPIZIDE [Suspect]

REACTIONS (6)
  - BALANCE DISORDER [None]
  - ALOPECIA [None]
  - PAIN [None]
  - LIP EXFOLIATION [None]
  - INSOMNIA [None]
  - SENSORY LOSS [None]
